FAERS Safety Report 8131075-4 (Version None)
Quarter: 2012Q1

REPORT INFORMATION
  Report Type: 
  Country: None (occurrence: None)
  Receive Date: 20120209
  Receipt Date: 20120209
  Transmission Date: 20120608
  Serious: No
  Sender: FDA-Public Use
  Company Number: None

PATIENT
  Sex: Male
  Weight: 72.5755 kg

DRUGS (2)
  1. PERCOCET [Suspect]
     Indication: BACK DISORDER
     Dosage: 90 A MONTH EVERY 8 HOURS
     Dates: start: 20111001, end: 20120101
  2. PERCOCET [Suspect]
     Indication: KNEE ARTHROPLASTY
     Dosage: 90 A MONTH EVERY 8 HOURS
     Dates: start: 20111001, end: 20120101

REACTIONS (1)
  - PRODUCT COUNTERFEIT [None]
